FAERS Safety Report 13490328 (Version 1)
Quarter: 2017Q2

REPORT INFORMATION
  Report Type: Spontaneous
  Country: US (occurrence: US)
  Receive Date: 20170427
  Receipt Date: 20170427
  Transmission Date: 20170830
  Serious: No
  Sender: FDA-Public Use
  Company Number: None

PATIENT
  Age: 43 Year
  Sex: Female
  Weight: 65.83 kg

DRUGS (1)
  1. LISINOPRIL. [Suspect]
     Active Substance: LISINOPRIL

REACTIONS (4)
  - Headache [None]
  - Cough [None]
  - Arthralgia [None]
  - Arthritis [None]

NARRATIVE: CASE EVENT DATE: 20160315
